FAERS Safety Report 18823100 (Version 2)
Quarter: 2021Q1

REPORT INFORMATION
  Report Type: Spontaneous
  Country: GR (occurrence: GR)
  Receive Date: 20210202
  Receipt Date: 20210218
  Transmission Date: 20210419
  Serious: Yes (Other)
  Sender: FDA-Public Use
  Company Number: GR-ALLERGAN-2104529US

PATIENT
  Sex: Female

DRUGS (2)
  1. DEX UNK [Suspect]
     Active Substance: UNSPECIFIED INGREDIENT
     Indication: HYPERSENSITIVITY
     Dosage: UNK
     Dates: start: 20180417
  2. XYZAL [Suspect]
     Active Substance: LEVOCETIRIZINE DIHYDROCHLORIDE
     Indication: PRODUCT USED FOR UNKNOWN INDICATION
     Dosage: UNK
     Dates: end: 20180417

REACTIONS (10)
  - Deformity [Not Recovered/Not Resolved]
  - Swelling face [Recovering/Resolving]
  - Blood pressure increased [Recovered/Resolved]
  - Hypersensitivity [Recovering/Resolving]
  - Oropharyngeal discomfort [Recovering/Resolving]
  - Craniofacial deformity [Recovering/Resolving]
  - Pharyngeal swelling [Recovering/Resolving]
  - Contusion [Recovered/Resolved]
  - Heart rate increased [Recovered/Resolved]
  - Blood glucose increased [Recovered/Resolved]

NARRATIVE: CASE EVENT DATE: 20180417
